FAERS Safety Report 25013692 (Version 1)
Quarter: 2025Q1

REPORT INFORMATION
  Report Type: Spontaneous
  Country: JP (occurrence: JP)
  Receive Date: 20250226
  Receipt Date: 20250226
  Transmission Date: 20250408
  Serious: Yes (Death, Life-Threatening, Hospitalization, Other)
  Sender: MERCK SHARP & DOHME LLC
  Company Number: JP-MSD-2412JPN000678J

PATIENT
  Age: 78 Year
  Sex: Male

DRUGS (3)
  1. KEYTRUDA [Suspect]
     Active Substance: PEMBROLIZUMAB
     Indication: Product used for unknown indication
     Route: 041
  2. CARBOPLATIN [Concomitant]
     Active Substance: CARBOPLATIN
     Indication: Malignant neoplasm of unknown primary site
     Route: 041
  3. PACLITAXEL [Concomitant]
     Active Substance: PACLITAXEL
     Indication: Malignant neoplasm of unknown primary site
     Route: 041

REACTIONS (3)
  - Death [Fatal]
  - Adrenocortical insufficiency acute [Unknown]
  - Immune-mediated adrenal insufficiency [Recovering/Resolving]

NARRATIVE: CASE EVENT DATE: 20220609
